FAERS Safety Report 23343576 (Version 3)
Quarter: 2024Q4

REPORT INFORMATION
  Report Type: Spontaneous
  Country: US (occurrence: US)
  Receive Date: 20231227
  Receipt Date: 20241017
  Transmission Date: 20250115
  Serious: Yes (Other)
  Sender: PFIZER
  Company Number: US-PFIZER INC-202300452952

PATIENT
  Age: 55 Year
  Sex: Female

DRUGS (11)
  1. XELJANZ [Suspect]
     Active Substance: TOFACITINIB CITRATE
     Dosage: 5 MG, 2X/DAY
     Route: 048
  2. XELJANZ [Suspect]
     Active Substance: TOFACITINIB CITRATE
     Dosage: 5 MG ORAL TWICE DAILY
     Route: 048
  3. XELJANZ [Suspect]
     Active Substance: TOFACITINIB CITRATE
     Dosage: 5 MG PER DAY ORALLY
     Route: 048
     Dates: start: 2019
  4. INFLUENZA VIRUS VACCINE [Concomitant]
     Active Substance: INFLUENZA VIRUS VACCINE
     Indication: Immunisation
     Dosage: DOES NUMBER UNKNOWN, SINGLE
     Dates: start: 20241001, end: 20241001
  5. OLMESARTAN MEDOXOMIL [Concomitant]
     Active Substance: OLMESARTAN MEDOXOMIL
     Dosage: 40 MG
  6. PANTOPRAZOLE SODIUM [Concomitant]
     Active Substance: PANTOPRAZOLE SODIUM
     Dosage: 40 MG
  7. ADVIL [Concomitant]
     Active Substance: IBUPROFEN
     Dosage: 200 MG
  8. HYDROCHLOROTHIAZIDE [Concomitant]
     Active Substance: HYDROCHLOROTHIAZIDE
     Dosage: 12.5 MG
  9. ROSUVASTATIN CALCIUM [Concomitant]
     Active Substance: ROSUVASTATIN CALCIUM
     Dosage: 20 MG
  10. DAILY VITE [ASCORBIC ACID;CALCIUM PANTOTHENATE;COLECALCIFEROL;CYANOCOB [Concomitant]
     Dosage: 400 UG
  11. ZINC [Concomitant]
     Active Substance: ZINC
     Dosage: 30 MG

REACTIONS (12)
  - Deafness unilateral [Recovering/Resolving]
  - COVID-19 [Unknown]
  - Stomatitis [Recovering/Resolving]
  - Streptococcal infection [Unknown]
  - Muscle spasms [Unknown]
  - Condition aggravated [Unknown]
  - Irritable bowel syndrome [Unknown]
  - Disease recurrence [Unknown]
  - Fatigue [Recovering/Resolving]
  - Oral infection [Unknown]
  - Influenza [Recovering/Resolving]
  - Off label use [Unknown]

NARRATIVE: CASE EVENT DATE: 20190101
